FAERS Safety Report 7030492-3 (Version None)
Quarter: 2010Q4

REPORT INFORMATION
  Report Type: 
  Country: None (occurrence: None)
  Receive Date: 20101006
  Receipt Date: 20100924
  Transmission Date: 20110411
  Serious: Yes (Other)
  Sender: FDA-Public Use
  Company Number: CA-SANOFI-AVENTIS-2010SA057466

PATIENT
  Age: 79 Year
  Sex: Male

DRUGS (9)
  1. PLAVIX [Suspect]
     Route: 048
     Dates: start: 20040101
  2. ASPIRIN [Concomitant]
     Route: 065
  3. INSULIN [Concomitant]
     Route: 058
  4. PRILOSEC [Concomitant]
     Indication: GASTRIC DISORDER
     Route: 048
  5. TERAZOSIN HCL [Concomitant]
     Indication: PRODUCT USED FOR UNKNOWN INDICATION
     Route: 048
  6. BISOPROLOL [Concomitant]
     Indication: BLOOD PRESSURE ABNORMAL
     Route: 048
  7. FUROSEMIDE [Concomitant]
     Indication: DIURETIC THERAPY
     Route: 048
  8. RAMIPRIL [Concomitant]
     Indication: BLOOD PRESSURE ABNORMAL
     Route: 048
  9. TAMSULOSIN HYDROCHLORIDE [Concomitant]
     Route: 048

REACTIONS (3)
  - CEREBROVASCULAR ACCIDENT [None]
  - HAEMOGLOBIN DECREASED [None]
  - MYOCARDIAL INFARCTION [None]
